FAERS Safety Report 22019840 (Version 1)
Quarter: 2023Q1

REPORT INFORMATION
  Report Type: Spontaneous
  Country: US (occurrence: None)
  Receive Date: 20230217
  Receipt Date: 20230217
  Transmission Date: 20230418
  Serious: No
  Sender: FDA-Public Use
  Company Number: None

PATIENT
  Sex: Female

DRUGS (1)
  1. ABILIFY [Suspect]
     Active Substance: ARIPIPRAZOLE
     Indication: Depression
     Dosage: FREQUENCY : AT BEDTIME;?OTHER ROUTE : ORAL;?
     Route: 050
     Dates: start: 20201102

REACTIONS (2)
  - Trismus [None]
  - Joint dislocation [None]

NARRATIVE: CASE EVENT DATE: 20220930
